FAERS Safety Report 6267006-1 (Version None)
Quarter: 2009Q3

REPORT INFORMATION
  Report Type: 
  Country: None (occurrence: None)
  Receive Date: 20090714
  Receipt Date: 20090706
  Transmission Date: 20100115
  Serious: Yes (Other)
  Sender: FDA-Public Use
  Company Number: US-AMGEN-US354363

PATIENT
  Sex: Female

DRUGS (3)
  1. ENBREL [Suspect]
     Indication: PYODERMA GANGRENOSUM
     Route: 058
     Dates: start: 20080301
  2. BETASERON [Suspect]
     Indication: MULTIPLE SCLEROSIS
     Route: 058
     Dates: start: 20061205, end: 20080415
  3. CORTICOSTEROID NOS [Concomitant]

REACTIONS (2)
  - EYE DISORDER [None]
  - PYODERMA GANGRENOSUM [None]
